FAERS Safety Report 6788510-3 (Version None)
Quarter: 2010Q2

REPORT INFORMATION
  Report Type: 
  Country: None (occurrence: None)
  Receive Date: 20100623
  Receipt Date: 20080327
  Transmission Date: 20101027
  Serious: No
  Sender: FDA-Public Use
  Company Number: US-PFIZER INC-2008027642

PATIENT
  Age: 28 Year
  Sex: Female

DRUGS (2)
  1. SOLU-MEDROL [Suspect]
     Route: 042
     Dates: start: 20080314
  2. INFED [Suspect]
     Indication: IRON DEFICIENCY ANAEMIA
     Route: 042

REACTIONS (3)
  - DYSPHONIA [None]
  - PRURITUS [None]
  - URTICARIA [None]
